FAERS Safety Report 25804526 (Version 1)
Quarter: 2025Q3

REPORT INFORMATION
  Report Type: Spontaneous
  Country: JP (occurrence: JP)
  Receive Date: 20250915
  Receipt Date: 20250915
  Transmission Date: 20251021
  Serious: Yes (Other)
  Sender: B. BRAUN MEDICAL INC.
  Company Number: JP-B. Braun Medical Inc.-JP-BBM-202503544

PATIENT
  Sex: Female

DRUGS (4)
  1. ACETAMINOPHEN [Suspect]
     Active Substance: ACETAMINOPHEN
     Indication: Oropharyngeal pain
  2. ACETAMINOPHEN [Suspect]
     Active Substance: ACETAMINOPHEN
     Indication: Pyrexia
  3. CEFCAPENE PIVOXIL [Suspect]
     Active Substance: CEFCAPENE PIVOXIL
     Indication: Oropharyngeal pain
  4. CEFCAPENE PIVOXIL [Suspect]
     Active Substance: CEFCAPENE PIVOXIL
     Indication: Pyrexia

REACTIONS (2)
  - Haemolysis [Recovering/Resolving]
  - Condition aggravated [Recovering/Resolving]
